FAERS Safety Report 10038917 (Version 2)
Quarter: 2014Q2

REPORT INFORMATION
  Report Type: Report from Study
  Country: US (occurrence: US)
  Receive Date: 20140326
  Receipt Date: 20140602
  Transmission Date: 20141212
  Serious: Yes (Other)
  Sender: FDA-Public Use
  Company Number: US-SA-2014SA035450

PATIENT
  Age: 51 Year
  Sex: Male

DRUGS (1)
  1. AUBAGIO [Suspect]
     Indication: MULTIPLE SCLEROSIS
     Route: 048
     Dates: start: 20131216

REACTIONS (5)
  - Shoulder operation [Unknown]
  - Skin mass [Unknown]
  - Rash pruritic [Unknown]
  - Alopecia [Unknown]
  - Drug dose omission [Unknown]
